FAERS Safety Report 6191435-8 (Version None)
Quarter: 2009Q2

REPORT INFORMATION
  Report Type: 
  Country: None (occurrence: None)
  Receive Date: 20090515
  Receipt Date: 20090504
  Transmission Date: 20091009
  Serious: Yes (Hospitalization)
  Sender: FDA-Public Use
  Company Number: DK-KINGPHARMUSA00001-K200900550

PATIENT
  Age: 66 Year
  Sex: Male

DRUGS (5)
  1. ALTACE [Suspect]
     Dosage: 5 MG, QD
     Dates: start: 20050301, end: 20070308
  2. ALTACE [Suspect]
     Dosage: 2.5 MG, QHS
     Dates: start: 20050301, end: 20070308
  3. FUROSEMIDE [Suspect]
     Dosage: 120 MG, QD
  4. METOLAZONE [Suspect]
     Dosage: 2.5 MG, QD
  5. SPIRONOLACTONE [Suspect]
     Dosage: 12.5 MG, QD

REACTIONS (5)
  - AZOTAEMIA [None]
  - BLOOD CREATININE INCREASED [None]
  - BLOOD PRESSURE INCREASED [None]
  - DEHYDRATION [None]
  - RENAL DISORDER [None]
